FAERS Safety Report 5343010-2 (Version None)
Quarter: 2007Q2

REPORT INFORMATION
  Report Type: 
  Country: None (occurrence: None)
  Receive Date: 20070416
  Receipt Date: 20070220
  Transmission Date: 20071010
  Serious: No
  Sender: FDA-Public Use
  Company Number: 2007SP000553

PATIENT
  Age: 43 Year
  Sex: Male
  Weight: 76.6579 kg

DRUGS (2)
  1. LUNESTA [Suspect]
     Indication: INSOMNIA
     Dosage: 3 MG; HS; ORAL
     Route: 048
     Dates: start: 20070101, end: 20070219
  2. FLOVENT [Concomitant]

REACTIONS (4)
  - DRUG EFFECT DECREASED [None]
  - PARADOXICAL DRUG REACTION [None]
  - PRURITUS GENERALISED [None]
  - URTICARIA [None]
